FAERS Safety Report 25100499 (Version 1)
Quarter: 2025Q1

REPORT INFORMATION
  Report Type: Spontaneous
  Country: GB (occurrence: GB)
  Receive Date: 20250320
  Receipt Date: 20250320
  Transmission Date: 20250408
  Serious: Yes (Death)
  Sender: VERTEX
  Company Number: GB-VERTEX PHARMACEUTICALS-2025-004375

PATIENT
  Sex: Female

DRUGS (1)
  1. ELEXACAFTOR\IVACAFTOR\TEZACAFTOR [Suspect]
     Active Substance: ELEXACAFTOR\IVACAFTOR\TEZACAFTOR
     Indication: Cystic fibrosis
     Dosage: 75MG IVA/50MG TEZA/100MG ELEXA; ONE TAB IN AM
     Route: 048
     Dates: end: 20250316

REACTIONS (1)
  - Death [Fatal]

NARRATIVE: CASE EVENT DATE: 20250316
